FAERS Safety Report 14330550 (Version 3)
Quarter: 2018Q1

REPORT INFORMATION
  Report Type: Spontaneous
  Country: US (occurrence: US)
  Receive Date: 20171227
  Receipt Date: 20180307
  Transmission Date: 20180509
  Serious: No
  Sender: FDA-Public Use
  Company Number: US-B.I. PHARMACEUTICALS,INC./RIDGEFIELD-2017-BI-068043

PATIENT
  Age: 63 Year
  Sex: Male

DRUGS (1)
  1. TRADJENTA [Suspect]
     Active Substance: LINAGLIPTIN
     Indication: PRODUCT USED FOR UNKNOWN INDICATION
     Dosage: ADMINISTRATION CORRECT? NR(NOT REPORTED); ACTION(S) TAKEN WITH PRODUCT: DOSE NOT CHANGED
     Route: 048
     Dates: start: 20150710

REACTIONS (16)
  - Heart rate irregular [Unknown]
  - Fatigue [Unknown]
  - Arthralgia [Unknown]
  - Tooth abscess [Unknown]
  - Hiatus hernia [Unknown]
  - Blood glucose increased [Unknown]
  - Vertigo [Unknown]
  - Back pain [Unknown]
  - Haemoglobin increased [Unknown]
  - Dyspnoea [Unknown]
  - Facial paralysis [Unknown]
  - Alanine aminotransferase increased [Unknown]
  - Bundle branch block right [Unknown]
  - Cellulitis [Unknown]
  - High density lipoprotein decreased [Unknown]
  - Blood triglycerides increased [Unknown]

NARRATIVE: CASE EVENT DATE: 20151204
